FAERS Safety Report 19652356 (Version 1)
Quarter: 2021Q3

REPORT INFORMATION
  Report Type: Spontaneous
  Country: HR (occurrence: HR)
  Receive Date: 20210803
  Receipt Date: 20210803
  Transmission Date: 20211014
  Serious: Yes (Life-Threatening)
  Sender: FDA-Public Use
  Company Number: HR-SAMSUNG BIOEPIS-SB-2021-18682

PATIENT
  Age: 27 Year
  Sex: Male
  Weight: 70 kg

DRUGS (2)
  1. FLIXABI [Suspect]
     Active Substance: INFLIXIMAB
     Indication: BEHCET^S SYNDROME
     Dosage: 400 MG
     Route: 042
  2. FLIXABI [Suspect]
     Active Substance: INFLIXIMAB
     Indication: UVEITIS

REACTIONS (5)
  - Urticaria [Recovered/Resolved]
  - Swelling [Recovered/Resolved]
  - Anaphylactic reaction [Recovered/Resolved]
  - Choking [Recovered/Resolved]
  - Product use in unapproved indication [Unknown]

NARRATIVE: CASE EVENT DATE: 20210715
